FAERS Safety Report 19068650 (Version 1)
Quarter: 2021Q1

REPORT INFORMATION
  Report Type: Spontaneous
  Country: US (occurrence: US)
  Receive Date: 20210328
  Receipt Date: 20210328
  Transmission Date: 20210420
  Serious: Yes (Disabling, Other)
  Sender: FDA-Public Use
  Company Number: None

PATIENT
  Age: 56 Year
  Sex: Female
  Weight: 56.25 kg

DRUGS (1)
  1. PALIPERIDONE ER 3MG [Suspect]
     Active Substance: PALIPERIDONE
     Indication: DRUG THERAPY
     Dates: start: 20200701, end: 20201007

REACTIONS (16)
  - Akathisia [None]
  - Memory impairment [None]
  - Alopecia [None]
  - Disturbance in attention [None]
  - Insomnia [None]
  - Amnesia [None]
  - Brain injury [None]
  - Cognitive disorder [None]
  - Restlessness [None]
  - Tremor [None]
  - Panic attack [None]
  - Mental impairment [None]
  - Feeling abnormal [None]
  - Agitation [None]
  - Fear [None]
  - Diffuse alopecia [None]

NARRATIVE: CASE EVENT DATE: 20200901
